FAERS Safety Report 5934754-X (Version None)
Quarter: 2008Q4

REPORT INFORMATION
  Report Type: 
  Country: None (occurrence: None)
  Receive Date: 20081029
  Receipt Date: 20081023
  Transmission Date: 20090506
  Serious: No
  Sender: FDA-Public Use
  Company Number: US-B.I. PHARMACEUTICALS,INC./RIDGEFIELD-2008-BP-16276BP

PATIENT
  Sex: Female

DRUGS (19)
  1. SPIRIVA [Suspect]
     Indication: ASTHMA
     Dosage: 18MCG
     Route: 055
     Dates: start: 20080901
  2. SYNTHROID [Concomitant]
     Indication: THYROID DISORDER
  3. ARIMIDEX [Concomitant]
     Indication: BREAST CANCER
  4. NEXIUM [Concomitant]
     Indication: ABDOMINAL DISCOMFORT
     Dosage: 80MG
  5. JANUVIA [Concomitant]
     Indication: DIABETES MELLITUS
  6. AMARYL [Concomitant]
     Indication: DIABETES MELLITUS
  7. GLUMETZA [Concomitant]
     Indication: DIABETES MELLITUS
  8. COZAAR [Concomitant]
     Indication: HYPERTENSION
  9. ZYRTEC [Concomitant]
     Indication: HYPERSENSITIVITY
  10. SINGULAIR [Concomitant]
  11. PULMICORT-100 [Concomitant]
  12. PROVENTIL [Concomitant]
  13. FLONASE [Concomitant]
  14. METOCLOPRAM [Concomitant]
  15. LIBRAX [Concomitant]
  16. MYLANTA [Concomitant]
  17. ASPIRIN [Concomitant]
  18. TYLENOL [Concomitant]
  19. HOMEOPATHICS [Concomitant]

REACTIONS (2)
  - CHEST EXPANSION DECREASED [None]
  - NASAL CONGESTION [None]
